FAERS Safety Report 13460959 (Version 1)
Quarter: 2017Q2

REPORT INFORMATION
  Report Type: Spontaneous
  Country: US (occurrence: US)
  Receive Date: 20170419
  Receipt Date: 20170419
  Transmission Date: 20170830
  Serious: Yes (Disabling)
  Sender: FDA-Public Use
  Company Number: None

PATIENT
  Age: 51 Year
  Sex: Female
  Weight: 72.9 kg

DRUGS (12)
  1. BIO IDENTICAL HORMONES [Concomitant]
  2. MAXALT [Concomitant]
     Active Substance: RIZATRIPTAN BENZOATE
  3. TURMERIC [Concomitant]
     Active Substance: HERBALS\TURMERIC
  4. OTC SINUS MEDS [Concomitant]
  5. LEVAQUIN [Suspect]
     Active Substance: LEVOFLOXACIN
     Indication: SINUSITIS
     Route: 048
     Dates: start: 20170404, end: 20170410
  6. TYLENOL WITH CODEINE [Concomitant]
     Active Substance: ACETAMINOPHEN\CODEINE PHOSPHATE
  7. VITAMEN D [Concomitant]
  8. FIBER SUPPLEMENTS [Concomitant]
  9. BIOTIN [Concomitant]
     Active Substance: BIOTIN
  10. WELLBUTRIN XL [Concomitant]
     Active Substance: BUPROPION HYDROCHLORIDE
  11. FISH OIL [Concomitant]
     Active Substance: FISH OIL
  12. PHENERGAN [Concomitant]
     Active Substance: PROMETHAZINE HYDROCHLORIDE

REACTIONS (13)
  - Insomnia [None]
  - Pain [None]
  - Hypoaesthesia [None]
  - Quality of life decreased [None]
  - Lethargy [None]
  - Headache [None]
  - Diarrhoea [None]
  - Depression [None]
  - Muscle spasms [None]
  - Fibromyalgia [None]
  - Arthralgia [None]
  - Apathy [None]
  - Paraesthesia [None]

NARRATIVE: CASE EVENT DATE: 20170404
